FAERS Safety Report 14035668 (Version 1)
Quarter: 2017Q4

REPORT INFORMATION
  Report Type: Spontaneous
  Country: US (occurrence: US)
  Receive Date: 20171003
  Receipt Date: 20171003
  Transmission Date: 20180321
  Serious: Yes (Other)
  Sender: FDA-Public Use
  Company Number: US-BIOMARINAP-US-2017-115565

PATIENT
  Age: 31 Year
  Sex: Female
  Weight: 105.2 kg

DRUGS (1)
  1. KUVAN [Suspect]
     Active Substance: SAPROPTERIN DIHYDROCHLORIDE
     Indication: PHENYLKETONURIA
     Dosage: 1600 MG, QD
     Route: 048
     Dates: start: 20170927

REACTIONS (3)
  - Anxiety [Unknown]
  - Dizziness [Unknown]
  - Visual field defect [Unknown]

NARRATIVE: CASE EVENT DATE: 20170927
